FAERS Safety Report 23494820 (Version 2)
Quarter: 2025Q4

REPORT INFORMATION
  Report Type: Spontaneous
  Country: US (occurrence: US)
  Receive Date: 20240207
  Receipt Date: 20251010
  Transmission Date: 20260118
  Serious: Yes (Other)
  Sender: PFIZER
  Company Number: US-PFIZER INC-PV202300019208

PATIENT
  Age: 78 Year
  Sex: Female

DRUGS (1)
  1. IBRANCE [Suspect]
     Active Substance: PALBOCICLIB
     Dosage: TAKE 1 TABLET ONCE ON DAYS 1-21 OF EACH 28 DAY CYCLE
     Route: 048

REACTIONS (5)
  - Neutropenia [Unknown]
  - Myelosuppression [Unknown]
  - Thrombocytopenia [Unknown]
  - Anaemia [Unknown]
  - Rhinorrhoea [Unknown]
